FAERS Safety Report 6805158-2 (Version None)
Quarter: 2010Q2

REPORT INFORMATION
  Report Type: 
  Country: None (occurrence: None)
  Receive Date: 20100628
  Receipt Date: 20070920
  Transmission Date: 20101027
  Serious: No
  Sender: FDA-Public Use
  Company Number: US-PFIZER INC-2007078914

PATIENT
  Sex: Female

DRUGS (4)
  1. XALATAN [Suspect]
     Indication: GLAUCOMA
     Dates: end: 20070901
  2. XALATAN [Suspect]
     Indication: INTRAOCULAR PRESSURE INCREASED
  3. WARFARIN SODIUM [Concomitant]
  4. SYSTANE [Concomitant]
     Indication: GLAUCOMA

REACTIONS (2)
  - FEELING ABNORMAL [None]
  - PAIN IN EXTREMITY [None]
